FAERS Safety Report 23153854 (Version 1)
Quarter: 2023Q4

REPORT INFORMATION
  Report Type: Spontaneous
  Country: US (occurrence: US)
  Receive Date: 20231107
  Receipt Date: 20231107
  Transmission Date: 20240110
  Serious: Yes (Life-Threatening, Other)
  Sender: FDA-Public Use
  Company Number: US-AMGEN-USASP2023193581

PATIENT
  Age: 64 Year
  Sex: Female

DRUGS (3)
  1. RITUXIMAB [Suspect]
     Active Substance: RITUXIMAB
     Indication: Transplant rejection
     Dosage: UNK (2 DOSES)
     Route: 065
  2. Immunoglobulin [Concomitant]
     Dosage: UNK UNK, QMO
     Route: 042
  3. VELCADE [Concomitant]
     Active Substance: BORTEZOMIB
     Dosage: UNK
     Route: 065

REACTIONS (5)
  - Shock [Unknown]
  - Respiratory acidosis [Unknown]
  - Pneumonia bacterial [Recovered/Resolved]
  - Acute kidney injury [Unknown]
  - Lung infiltration [Unknown]
